FAERS Safety Report 5052532-3 (Version None)
Quarter: 2006Q3

REPORT INFORMATION
  Report Type: 
  Country: None (occurrence: None)
  Receive Date: 20060711
  Receipt Date: 20060619
  Transmission Date: 20061208
  Serious: Yes (Other)
  Sender: FDA-Public Use
  Company Number: ES200604000859

PATIENT
  Age: 48 Year
  Sex: Female

DRUGS (10)
  1. CYMBALTA [Suspect]
     Indication: DEPRESSION
     Dosage: 60 MG; 120 MG; 60 MG
     Dates: start: 20060302, end: 20060316
  2. CYMBALTA [Suspect]
     Indication: DEPRESSION
     Dosage: 60 MG; 120 MG; 60 MG
     Dates: start: 20060316, end: 20060327
  3. CYMBALTA [Suspect]
     Indication: DEPRESSION
     Dosage: 60 MG; 120 MG; 60 MG
     Dates: start: 20060327
  4. ZYPREXA [Suspect]
     Indication: PSYCHOTIC DISORDER
  5. VENLAFAXINE HCL [Concomitant]
  6. TRAZODONE HCL [Concomitant]
  7. LUDIOMIL [Concomitant]
  8. DIAZEPAM [Concomitant]
  9. LEVOTHROID [Concomitant]
  10. PLATELET AGGREGATION INHIBITORS [Concomitant]

REACTIONS (2)
  - GRANULOCYTOSIS [None]
  - LEUKOCYTURIA [None]
